FAERS Safety Report 5979658-1 (Version None)
Quarter: 2008Q4

REPORT INFORMATION
  Report Type: 
  Country: None (occurrence: None)
  Receive Date: 20081204
  Receipt Date: 20081125
  Transmission Date: 20090506
  Serious: Yes (Life-Threatening, Other)
  Sender: FDA-Public Use
  Company Number: TW-WATSON-2008-07032

PATIENT
  Age: 30 Year
  Sex: Female

DRUGS (2)
  1. TRAZODONE HYDROCHLORIDE [Suspect]
     Indication: MAJOR DEPRESSION
     Dosage: 2000 MG, SINGLE (40 TABS)
  2. DIAZEPAM [Concomitant]
     Indication: MAJOR DEPRESSION
     Dosage: 5 MG, DAILY

REACTIONS (2)
  - INTENTIONAL OVERDOSE [None]
  - TORSADE DE POINTES [None]
